FAERS Safety Report 10258138 (Version 1)
Quarter: 2014Q2

REPORT INFORMATION
  Report Type: Spontaneous
  Country: US (occurrence: None)
  Receive Date: 20140623
  Receipt Date: 20140623
  Transmission Date: 20141212
  Serious: Yes (Death, Hospitalization)
  Sender: FDA-Public Use
  Company Number: 2014US0272

PATIENT
  Age: 58 Year
  Sex: Male

DRUGS (1)
  1. KINERET (ANAKINRA), NOT AVAILABLE [Suspect]
     Indication: OBLITERATIVE BRONCHIOLITIS
     Dates: start: 20140304

REACTIONS (1)
  - Death [None]
